FAERS Safety Report 6430650-2 (Version None)
Quarter: 2009Q4

REPORT INFORMATION
  Report Type: 
  Country: None (occurrence: None)
  Receive Date: 20091106
  Receipt Date: 20091028
  Transmission Date: 20100525
  Serious: Yes (Other)
  Sender: FDA-Public Use
  Company Number: B0600547A

PATIENT
  Sex: Female

DRUGS (1)
  1. VENTOLIN [Suspect]
     Indication: ASTHMA
     Route: 042
     Dates: start: 20091001, end: 20091001

REACTIONS (2)
  - BLOOD GLUCOSE INCREASED [None]
  - METABOLIC ACIDOSIS [None]
